FAERS Safety Report 15202718 (Version 1)
Quarter: 2018Q4

REPORT INFORMATION
  Report Type: Spontaneous
  Country: DE (occurrence: DE)
  Receive Date: 20180726
  Receipt Date: 20180726
  Transmission Date: 20190204
  Serious: Yes (Hospitalization)
  Sender: FDA-Public Use
  Company Number: DE-HIKMA PHARMACEUTICALS USA INC.-DE-H14001-18-06094

PATIENT
  Age: 76 Year
  Sex: Male
  Weight: 81 kg

DRUGS (14)
  1. FOLINIC ACID [Concomitant]
     Active Substance: LEUCOVORIN
     Indication: COLORECTAL CANCER
     Route: 042
     Dates: start: 20140224, end: 20140224
  2. TAMSULOSIN [Concomitant]
     Active Substance: TAMSULOSIN
     Indication: BENIGN PROSTATIC HYPERPLASIA
     Dosage: ()
     Route: 065
     Dates: start: 2011
  3. TAMSULOSIN [Concomitant]
     Active Substance: TAMSULOSIN
     Indication: HYPOKALAEMIA
     Route: 048
     Dates: start: 2011
  4. CAPECITABINE. [Suspect]
     Active Substance: CAPECITABINE
     Indication: COLORECTAL CANCER
     Route: 048
     Dates: start: 20140825, end: 20141027
  5. IRINOTECAN [Concomitant]
     Active Substance: IRINOTECAN
     Indication: COLORECTAL CANCER
     Route: 042
     Dates: start: 20140224, end: 20140224
  6. 5-FLUOROURACIL [Concomitant]
     Active Substance: FLUOROURACIL
     Route: 040
     Dates: start: 20140224, end: 20140224
  7. NOVAMINE [Concomitant]
     Active Substance: ALANINE\ARGININE\ASPARTIC ACID\GLUTAMIC ACID\GLYCINE\HISTIDINE\ISOLEUCINE\LEUCINE\LYSINE ACETATE\METHIONINE\PHENYLALANINE\PROLINE\SERINE\THREONINE\TRYPTOPHAN\TYROSINE\VALINE
     Indication: PAIN
     Dosage: ()
     Route: 065
     Dates: start: 20140303
  8. CAPECITABINE. [Suspect]
     Active Substance: CAPECITABINE
     Route: 048
     Dates: start: 20140310
  9. FOLINIC ACID [Concomitant]
     Active Substance: LEUCOVORIN
     Route: 065
     Dates: start: 20141020, end: 20141020
  10. BEVACIZUMAB. [Suspect]
     Active Substance: BEVACIZUMAB
     Indication: COLORECTAL CANCER METASTATIC
     Route: 042
     Dates: start: 20140310, end: 20141027
  11. TOREM [Concomitant]
     Active Substance: TORSEMIDE
     Indication: DYSPNOEA
     Route: 048
     Dates: start: 20140306, end: 20140306
  12. TOREM [Concomitant]
     Active Substance: TORSEMIDE
     Route: 048
     Dates: start: 201402
  13. LOPERAMID [Concomitant]
     Active Substance: LOPERAMIDE
     Indication: DIARRHOEA
     Route: 048
     Dates: start: 201402
  14. 5-FLUOROURACIL [Concomitant]
     Active Substance: FLUOROURACIL
     Indication: COLORECTAL CANCER
     Route: 041
     Dates: start: 20141020, end: 20141021

REACTIONS (4)
  - Mucosal inflammation [Recovered/Resolved]
  - Palmar-plantar erythrodysaesthesia syndrome [Recovered/Resolved]
  - Onychoclasis [Recovered/Resolved]
  - Incisional hernia [Recovered/Resolved]

NARRATIVE: CASE EVENT DATE: 20140324
